FAERS Safety Report 7355427-5 (Version None)
Quarter: 2011Q1

REPORT INFORMATION
  Report Type: 
  Country: None (occurrence: None)
  Receive Date: 20110316
  Receipt Date: 20110303
  Transmission Date: 20110831
  Serious: Yes (Death, Life-Threatening, Other)
  Sender: FDA-Public Use
  Company Number: JP-ELI_LILLY_AND_COMPANY-JP201003004263

PATIENT
  Sex: Female
  Weight: 53 kg

DRUGS (7)
  1. ITOROL [Concomitant]
     Indication: CARDIAC FAILURE
     Dosage: 20 MG, 2/D
     Route: 048
     Dates: end: 20081021
  2. GEMCITABINE HYDROCHLORIDE [Suspect]
     Indication: PANCREATIC CARCINOMA RECURRENT
     Route: 042
  3. SIGMART [Concomitant]
     Indication: CARDIAC FAILURE
     Dosage: 5 MG, 3/D
     Route: 048
     Dates: end: 20081021
  4. WARFARIN [Concomitant]
     Indication: MYOCARDIAL INFARCTION
     Dosage: 1 MG, DAILY (1/D)
     Route: 048
     Dates: end: 20081021
  5. METHYCOBAL [Concomitant]
     Indication: HYPOAESTHESIA
     Dosage: 500 UG, 3/D
     Route: 048
     Dates: end: 20081021
  6. BETAMETHASONE [Concomitant]
     Indication: MALAISE
     Dosage: 0.5 MG, 2/D
     Route: 048
     Dates: end: 20081021
  7. ASPIRIN [Concomitant]
     Indication: DEEP VEIN THROMBOSIS
     Dosage: 100 MG, 2/D
     Route: 048
     Dates: end: 20081021

REACTIONS (7)
  - PANCREATIC CARCINOMA [None]
  - DISUSE SYNDROME [None]
  - NEOPLASM MALIGNANT [None]
  - LUNG DISORDER [None]
  - PNEUMOCYSTIS JIROVECI PNEUMONIA [None]
  - LYMPHANGIOSIS CARCINOMATOSA [None]
  - INTERSTITIAL LUNG DISEASE [None]
